FAERS Safety Report 23633930 (Version 5)
Quarter: 2024Q2

REPORT INFORMATION
  Report Type: Spontaneous
  Country: US (occurrence: US)
  Receive Date: 20240314
  Receipt Date: 20240611
  Transmission Date: 20240716
  Serious: Yes (Hospitalization)
  Sender: FDA-Public Use
  Company Number: US-PFIZER INC-202400063784

PATIENT
  Age: 74 Year
  Sex: Male
  Weight: 65.77 kg

DRUGS (3)
  1. VYNDAMAX [Suspect]
     Active Substance: TAFAMIDIS
     Indication: Amyloidosis
     Dosage: 61 MG
     Dates: start: 202111
  2. VYNDAMAX [Suspect]
     Active Substance: TAFAMIDIS
     Indication: Cardiac failure
     Dosage: 61MG TAKEN ONCE PER DAY AT LUNCH BY MOUTH
     Route: 048
     Dates: end: 202403
  3. VYNDAMAX [Suspect]
     Active Substance: TAFAMIDIS
     Dosage: 61 MG
     Route: 048
     Dates: end: 20240510

REACTIONS (5)
  - Gastrointestinal tube insertion [Recovering/Resolving]
  - Pharyngitis [Recovering/Resolving]
  - Dysphagia [Recovered/Resolved]
  - Disease progression [Recovered/Resolved]
  - Infection [Recovered/Resolved]

NARRATIVE: CASE EVENT DATE: 20240315
